FAERS Safety Report 10203459 (Version 1)
Quarter: 2014Q2

REPORT INFORMATION
  Report Type: Spontaneous
  Country: BR (occurrence: BR)
  Receive Date: 20140529
  Receipt Date: 20140529
  Transmission Date: 20141212
  Serious: Yes (Other)
  Sender: FDA-Public Use
  Company Number: BR-ROCHE-1406322

PATIENT
  Sex: Female
  Weight: 40 kg

DRUGS (5)
  1. VALIUM [Suspect]
     Indication: NERVOUS SYSTEM DISORDER
     Route: 065
  2. LEXOTAN [Suspect]
     Indication: NERVOUS SYSTEM DISORDER
     Route: 065
  3. LORAX [Suspect]
     Indication: NERVOUS SYSTEM DISORDER
     Route: 065
  4. CITONEURIN [Suspect]
     Indication: NERVOUS SYSTEM DISORDER
     Route: 065
  5. B COMPLEX TABS [Concomitant]

REACTIONS (13)
  - Cerebrovascular accident [Unknown]
  - Sinusitis [Unknown]
  - Throat tightness [Unknown]
  - Agitation [Unknown]
  - Fall [Unknown]
  - Drug dose omission [Unknown]
  - Face injury [Unknown]
  - Grip strength decreased [Unknown]
  - Gait disturbance [Unknown]
  - Choking [Unknown]
  - Head injury [Unknown]
  - Skin discolouration [Unknown]
  - Haemorrhage [Unknown]
